FAERS Safety Report 5724542-1 (Version None)
Quarter: 2008Q2

REPORT INFORMATION
  Report Type: 
  Country: None (occurrence: None)
  Receive Date: 20080501
  Receipt Date: 20080423
  Transmission Date: 20081010
  Serious: Yes (Hospitalization)
  Sender: FDA-Public Use
  Company Number: AT-BAYER-200816410GPV

PATIENT
  Age: 44 Year
  Sex: Female

DRUGS (1)
  1. MIRENA [Suspect]
     Indication: CONTRACEPTION
     Dosage: TOTAL DAILY DOSE: 20 ?G
     Route: 015
     Dates: start: 20070501, end: 20080325

REACTIONS (4)
  - ABDOMINAL ADHESIONS [None]
  - ABDOMINAL PAIN [None]
  - CHLAMYDIAL INFECTION [None]
  - FALLOPIAN TUBE ABSCESS [None]
